FAERS Safety Report 18933559 (Version 3)
Quarter: 2021Q1

REPORT INFORMATION
  Report Type: Spontaneous
  Country: US (occurrence: US)
  Receive Date: 20210224
  Receipt Date: 20210319
  Transmission Date: 20210420
  Serious: No
  Sender: FDA-Public Use
  Company Number: US-SA-2021SA057866

PATIENT
  Age: 74 Year
  Sex: Male

DRUGS (3)
  1. BIOTIN [Suspect]
     Active Substance: BIOTIN
     Dosage: UNK
  2. DUPIXENT [Suspect]
     Active Substance: DUPILUMAB
     Indication: ASTHMA
     Dosage: 600 MG, 1X
     Route: 058
     Dates: start: 20201208, end: 20201208
  3. DUPIXENT [Suspect]
     Active Substance: DUPILUMAB
     Dosage: 300 MG, QOW
     Route: 058
     Dates: start: 2020, end: 20210210

REACTIONS (19)
  - Lacrimation increased [Recovered/Resolved]
  - Unevaluable event [Unknown]
  - Eye disorder [Recovered/Resolved]
  - Visual brightness [Recovered/Resolved]
  - Product use issue [Unknown]
  - Dry mouth [Unknown]
  - Diplopia [Unknown]
  - Hypersensitivity [Recovered/Resolved]
  - Drug ineffective [Unknown]
  - Somnolence [Unknown]
  - Respiration abnormal [Unknown]
  - Eye pruritus [Recovered/Resolved]
  - Photophobia [Recovered/Resolved]
  - Lethargy [Unknown]
  - Headache [Unknown]
  - Eye irritation [Recovered/Resolved]
  - Diplopia [Recovered/Resolved]
  - Photopsia [Recovered/Resolved]
  - Asthenia [Unknown]

NARRATIVE: CASE EVENT DATE: 20201208
